FAERS Safety Report 8670392 (Version 3)
Quarter: 2012Q4

REPORT INFORMATION
  Report Type: 
  Country: JP (occurrence: JP)
  Receive Date: 20120718
  Receipt Date: 20120914
  Transmission Date: 20130627
  Serious: Yes (Hospitalization)
  Sender: FDA-Public Use
  Company Number: JP-AMGEN-JPNCT2012044401

PATIENT
  Age: 78 Year
  Sex: Male
  Weight: 54 kg

DRUGS (4)
  1. PANITUMUMAB [Suspect]
     Indication: COLORECTAL CANCER METASTATIC
     Dosage: 300 mg, q2wk
     Route: 041
     Dates: start: 20111122, end: 20120628
  2. ISOVORIN [Concomitant]
     Indication: COLORECTAL CANCER
     Dosage: 250 mg, q4wk
     Route: 041
     Dates: start: 20111122, end: 20120614
  3. 5-FU [Concomitant]
     Indication: COLORECTAL CANCER
     Dosage: 500 mg, q4wk
     Route: 041
     Dates: start: 20111122, end: 20120614
  4. ELPLAT [Concomitant]
     Indication: COLORECTAL CANCER
     Dosage: 100 mg, q4wk
     Route: 041
     Dates: start: 20111122, end: 20120614

REACTIONS (3)
  - Interstitial lung disease [Recovered/Resolved]
  - Malaise [Unknown]
  - Decreased appetite [Unknown]
